FAERS Safety Report 12631721 (Version 2)
Quarter: 2016Q3

REPORT INFORMATION
  Report Type: Spontaneous
  Country: US (occurrence: US)
  Receive Date: 20160808
  Receipt Date: 20160808
  Transmission Date: 20161109
  Serious: No
  Sender: FDA-Public Use
  Company Number: US-BEH-2016060800

PATIENT
  Age: 14 Year
  Sex: Female
  Weight: 38 kg

DRUGS (26)
  1. KEFLEX [Concomitant]
     Active Substance: CEPHALEXIN
  2. NASONEX [Concomitant]
     Active Substance: MOMETASONE FUROATE
  3. L-M-X [Concomitant]
  4. ZYRTEC [Concomitant]
     Active Substance: CETIRIZINE HYDROCHLORIDE
  5. HIZENTRA [Suspect]
     Active Substance: HUMAN IMMUNOGLOBULIN G
     Indication: AMINO ACID METABOLISM DISORDER
     Route: 058
  6. HIZENTRA [Suspect]
     Active Substance: HUMAN IMMUNOGLOBULIN G
     Indication: HYPOGAMMAGLOBULINAEMIA
     Route: 058
  7. OMNITROPE [Concomitant]
     Active Substance: SOMATROPIN
  8. ARIMIDEX [Concomitant]
     Active Substance: ANASTROZOLE
  9. ASPIRIN EC [Concomitant]
     Active Substance: ASPIRIN
  10. CARBAGLU [Concomitant]
     Active Substance: CARGLUMIC ACID
  11. MIRALAX [Concomitant]
     Active Substance: POLYETHYLENE GLYCOL 3350
  12. HIZENTRA [Suspect]
     Active Substance: HUMAN IMMUNOGLOBULIN G
     Indication: HUMORAL IMMUNE DEFECT
     Route: 058
  13. VITAMIN D3 [Concomitant]
     Active Substance: CHOLECALCIFEROL
  14. ACETAMINOPHEN. [Concomitant]
     Active Substance: ACETAMINOPHEN
  15. DIPHENHYDRAMINE. [Concomitant]
     Active Substance: DIPHENHYDRAMINE
  16. CARNITOR [Concomitant]
     Active Substance: LEVOCARNITINE
  17. ALBUTEROL. [Concomitant]
     Active Substance: ALBUTEROL
  18. PREVACID [Concomitant]
     Active Substance: LANSOPRAZOLE
  19. EMLA [Concomitant]
     Active Substance: LIDOCAINE\PRILOCAINE
  20. SYNTHROID [Concomitant]
     Active Substance: LEVOTHYROXINE SODIUM
  21. ZOFRAN [Concomitant]
     Active Substance: ONDANSETRON HYDROCHLORIDE
  22. NYSTATIN. [Concomitant]
     Active Substance: NYSTATIN
  23. EPIPEN [Concomitant]
     Active Substance: EPINEPHRINE
  24. SINGULAIR [Concomitant]
     Active Substance: MONTELUKAST SODIUM
  25. ACIDOPHILUS [Concomitant]
     Active Substance: LACTOBACILLUS ACIDOPHILUS
  26. PATANASE [Concomitant]
     Active Substance: OLOPATADINE HYDROCHLORIDE

REACTIONS (1)
  - Ear infection [Unknown]

NARRATIVE: CASE EVENT DATE: 20151223
